FAERS Safety Report 12983694 (Version 1)
Quarter: 2016Q4

REPORT INFORMATION
  Report Type: Spontaneous
  Country: NL (occurrence: NL)
  Receive Date: 20161129
  Receipt Date: 20161129
  Transmission Date: 20170207
  Serious: Yes (Hospitalization)
  Sender: FDA-Public Use
  Company Number: NL-SA-2016SA212481

PATIENT
  Age: 66 Year
  Sex: Female
  Weight: 68 kg

DRUGS (6)
  1. DEXAMETHASONE. [Suspect]
     Active Substance: DEXAMETHASONE
     Route: 048
     Dates: start: 20161009, end: 20161011
  2. CALCIUM CARBONATE. [Concomitant]
     Active Substance: CALCIUM CARBONATE
     Route: 048
     Dates: start: 2013
  3. XGEVA [Suspect]
     Active Substance: DENOSUMAB
     Route: 030
     Dates: start: 20161014
  4. LEVOTHYROXINE. [Concomitant]
     Active Substance: LEVOTHYROXINE
     Dosage: 1.5 TABLET VAN 50 MICROGRAM.
     Route: 048
     Dates: start: 2006
  5. LONQUEX [Suspect]
     Active Substance: LIPEGFILGRASTIM
     Indication: PROPHYLAXIS
     Route: 058
     Dates: start: 20161011
  6. TAXOTERE [Suspect]
     Active Substance: DOCETAXEL
     Indication: CHEMOTHERAPY
     Route: 051
     Dates: start: 20161010, end: 20161010

REACTIONS (11)
  - Pyrexia [Recovered/Resolved]
  - Hyponatraemia [Recovered/Resolved]
  - Dry mouth [Unknown]
  - Hepatic function abnormal [Unknown]
  - Neutropenia [Unknown]
  - Headache [Not Recovered/Not Resolved]
  - Bone pain [Unknown]
  - Migraine with aura [Unknown]
  - Fatigue [Unknown]
  - Phantom pain [Unknown]
  - Nasal dryness [Unknown]

NARRATIVE: CASE EVENT DATE: 201610
